FAERS Safety Report 20635438 (Version 3)
Quarter: 2022Q2

REPORT INFORMATION
  Report Type: Report from Study
  Country: HU (occurrence: HU)
  Receive Date: 20220325
  Receipt Date: 20220425
  Transmission Date: 20220721
  Serious: Yes (Other)
  Sender: FDA-Public Use
  Company Number: HU-NOVARTISPH-NVSC2022HU065029

PATIENT
  Age: 72 Year
  Sex: Male
  Weight: 105 kg

DRUGS (1)
  1. MYFORTIC [Suspect]
     Active Substance: MYCOPHENOLATE SODIUM
     Indication: Renal transplant
     Dosage: 1440 MG
     Route: 048
     Dates: start: 20211106

REACTIONS (2)
  - Immunosuppression [Recovered/Resolved]
  - Hyperchlorhydria [Recovered/Resolved]

NARRATIVE: CASE EVENT DATE: 20220303
